FAERS Safety Report 25132831 (Version 2)
Quarter: 2025Q2

REPORT INFORMATION
  Report Type: Spontaneous
  Country: NZ (occurrence: NZ)
  Receive Date: 20250328
  Receipt Date: 20250520
  Transmission Date: 20250716
  Serious: Yes (Other)
  Sender: TEVA
  Company Number: NZ-TEVA-VS-3312034

PATIENT
  Age: 60 Year
  Sex: Male

DRUGS (1)
  1. OMEPRAZOLE [Suspect]
     Active Substance: OMEPRAZOLE
     Indication: Gastrooesophageal reflux disease
     Dosage: 2 CAPSULE AT NIGHT, PATIENT TOOK 3 LAST NIGHT
     Route: 065
     Dates: start: 202503

REACTIONS (6)
  - Choking [Unknown]
  - Throat irritation [Unknown]
  - Cough [Unknown]
  - Drug ineffective [Unknown]
  - Product substitution issue [Unknown]
  - Middle insomnia [Unknown]

NARRATIVE: CASE EVENT DATE: 20230301
